FAERS Safety Report 18845783 (Version 2)
Quarter: 2021Q1

REPORT INFORMATION
  Report Type: Report from Study
  Country: HK (occurrence: HK)
  Receive Date: 20210204
  Receipt Date: 20210212
  Transmission Date: 20210419
  Serious: Yes (Death, Hospitalization)
  Sender: FDA-Public Use
  Company Number: HK-ROCHE-2614494

PATIENT
  Age: 73 Year
  Sex: Female
  Weight: 53.3 kg

DRUGS (2)
  1. ATEZOLIZUMAB. [Suspect]
     Active Substance: ATEZOLIZUMAB
     Indication: HEPATOCELLULAR CARCINOMA
     Dosage: DATE OF THE MOST RECENT DOSE OF ATEZOLIZUMAB PRIOR TO THE EVENT ONSET? 26/MAY/2020
     Route: 041
     Dates: start: 20200415
  2. XL184 [Suspect]
     Active Substance: CABOZANTINIB
     Indication: HEPATOCELLULAR CARCINOMA
     Dosage: DATE OF THE MOST RECENT DOSE OF CABOZANTINIB PRIOR TO THE EVENT ONSET? 27/MAY/2020 AT A DOSE 20 MG
     Route: 048
     Dates: start: 20200415

REACTIONS (2)
  - Death [Fatal]
  - Hepatic encephalopathy [Recovered/Resolved]

NARRATIVE: CASE EVENT DATE: 20200528
